FAERS Safety Report 8384907-9 (Version None)
Quarter: 2012Q2

REPORT INFORMATION
  Report Type: 
  Country: None (occurrence: None)
  Receive Date: 20120524
  Receipt Date: 20120514
  Transmission Date: 20120825
  Serious: No
  Sender: FDA-Public Use
  Company Number: US-ASTRAZENECA-2012SE30895

PATIENT
  Age: 51 Year
  Sex: Male
  Weight: 81.6 kg

DRUGS (11)
  1. SEROQUEL XR [Suspect]
     Route: 048
     Dates: start: 20120101
  2. SEROQUEL XR [Suspect]
     Route: 048
     Dates: start: 20120101
  3. SEROQUEL XR [Suspect]
     Indication: DEPRESSION
     Route: 048
  4. SEROQUEL XR [Suspect]
     Route: 048
     Dates: start: 20120101
  5. SEROQUEL XR [Suspect]
     Route: 048
     Dates: start: 20120101
  6. PROZAC [Concomitant]
  7. ADDERALL 5 [Concomitant]
  8. SEROQUEL XR [Suspect]
     Route: 048
     Dates: start: 20120101
  9. SEROQUEL XR [Suspect]
     Indication: MAJOR DEPRESSION
     Route: 048
  10. SEROQUEL XR [Suspect]
     Indication: ANXIETY
     Route: 048
  11. SEROQUEL XR [Suspect]
     Route: 048
     Dates: start: 20120101

REACTIONS (3)
  - SKIN ODOUR ABNORMAL [None]
  - SWEAT DISCOLOURATION [None]
  - HYPERHIDROSIS [None]
